FAERS Safety Report 4674112-1 (Version None)
Quarter: 2005Q2

REPORT INFORMATION
  Report Type: 
  Country: None (occurrence: None)
  Receive Date: 20050524
  Receipt Date: 20050524
  Transmission Date: 20051028
  Serious: No
  Sender: FDA-Public Use
  Company Number: None

PATIENT
  Age: 32 Year
  Sex: Female
  Weight: 204.1187 kg

DRUGS (6)
  1. PAXIL [Suspect]
     Indication: ANXIETY
     Dosage: 20 MG ORAL
     Route: 048
     Dates: start: 19971018, end: 19971202
  2. PAXIL [Suspect]
     Indication: DEPRESSION
     Dosage: 20 MG ORAL
     Route: 048
     Dates: start: 19971018, end: 19971202
  3. PAXIL [Suspect]
     Indication: PANIC DISORDER
     Dosage: 20 MG ORAL
     Route: 048
     Dates: start: 19971018, end: 19971202
  4. ZOLOFT [Suspect]
     Indication: ANXIETY
     Dosage: 100 MG ORAL
     Route: 048
     Dates: start: 19980106, end: 20050524
  5. ZOLOFT [Suspect]
     Indication: DEPRESSION
     Dosage: 100 MG ORAL
     Route: 048
     Dates: start: 19980106, end: 20050524
  6. ZOLOFT [Suspect]
     Indication: PANIC DISORDER
     Dosage: 100 MG ORAL
     Route: 048
     Dates: start: 19980106, end: 20050524

REACTIONS (4)
  - ANXIETY [None]
  - DIZZINESS [None]
  - SEXUAL DYSFUNCTION [None]
  - WEIGHT INCREASED [None]
